FAERS Safety Report 9026013 (Version 2)
Quarter: 2013Q1

REPORT INFORMATION
  Report Type: Spontaneous
  Country: US (occurrence: US)
  Receive Date: 20130122
  Receipt Date: 20130328
  Transmission Date: 20140127
  Serious: Yes (Life-Threatening, Other)
  Sender: FDA-Public Use
  Company Number: US-PFIZER INC-2013024114

PATIENT
  Sex: Male

DRUGS (1)
  1. DILANTIN-125 [Suspect]
     Dosage: UNK
     Dates: start: 20120815, end: 20130118

REACTIONS (4)
  - Victim of crime [Unknown]
  - Coma [Unknown]
  - Convulsion [Unknown]
  - Nervous system disorder [Unknown]
